FAERS Safety Report 7522525-2 (Version None)
Quarter: 2011Q2

REPORT INFORMATION
  Report Type: 
  Country: None (occurrence: None)
  Receive Date: 20110603
  Receipt Date: 20110502
  Transmission Date: 20111010
  Serious: No
  Sender: FDA-Public Use
  Company Number: US-BAYER-2011-038808

PATIENT
  Age: 20 Month
  Sex: Female
  Weight: 11 kg

DRUGS (4)
  1. ALBUTEROL [Concomitant]
  2. PREDNISOLONE [Concomitant]
  3. SINGULAIR [Concomitant]
  4. ALEVE (CAPLET) [Suspect]
     Dosage: 2 DF, ONCE
     Route: 048
     Dates: start: 20110502

REACTIONS (1)
  - NO ADVERSE EVENT [None]
